FAERS Safety Report 8657596 (Version 2)
Quarter: 2012Q4

REPORT INFORMATION
  Report Type: 
  Country: US (occurrence: US)
  Receive Date: 20120710
  Receipt Date: 20121011
  Transmission Date: 20130627
  Serious: Yes (Other)
  Sender: FDA-Public Use
  Company Number: US-JNJFOC-20120703484

PATIENT
  Age: 52 Year
  Sex: Female
  Weight: 78 kg

DRUGS (6)
  1. IBUPROFEN [Suspect]
     Indication: HEADACHE
     Route: 048
     Dates: start: 201206, end: 201206
  2. IBUPROFEN [Suspect]
     Indication: BACK PAIN
     Route: 048
     Dates: start: 201206, end: 201206
  3. CELEBREX [Suspect]
     Indication: HEADACHE
     Route: 048
     Dates: start: 201206, end: 201206
  4. CELEBREX [Suspect]
     Indication: MUSCLE SPASMS
     Route: 048
     Dates: start: 201206, end: 201206
  5. CELEBREX [Suspect]
     Indication: BACK PAIN
     Route: 048
     Dates: start: 201206, end: 201206
  6. ALBUTEROL [Concomitant]
     Indication: ASTHMA
     Dosage: 2 puffs, as needed
     Route: 065

REACTIONS (5)
  - Bronchitis [Not Recovered/Not Resolved]
  - Gastrooesophageal reflux disease [Recovered/Resolved]
  - Drug ineffective [Unknown]
  - Overdose [Unknown]
  - Nasopharyngitis [None]
